FAERS Safety Report 18401375 (Version 1)
Quarter: 2020Q4

REPORT INFORMATION
  Report Type: Spontaneous
  Country: GB (occurrence: GB)
  Receive Date: 20201019
  Receipt Date: 20201019
  Transmission Date: 20210114
  Serious: Yes (Death, Hospitalization, Other)
  Sender: FDA-Public Use
  Company Number: NVSC2020GB274497

PATIENT
  Age: 52 Year
  Sex: Male

DRUGS (3)
  1. CYCLOPHOSPHAMIDE. [Suspect]
     Active Substance: CYCLOPHOSPHAMIDE
     Indication: SYSTEMIC SCLERODERMA
     Dosage: UNK
     Route: 065
  2. HYDROXYCHLOROQUINE [Suspect]
     Active Substance: HYDROXYCHLOROQUINE
     Indication: SYSTEMIC SCLERODERMA
     Dosage: UNK
     Route: 065
  3. MYCOPHENOLATE MOFETIL. [Concomitant]
     Active Substance: MYCOPHENOLATE MOFETIL
     Indication: SYSTEMIC SCLERODERMA
     Dosage: UNK
     Route: 065

REACTIONS (3)
  - Off label use [Unknown]
  - Left ventricular failure [Fatal]
  - Cardiotoxicity [Fatal]

NARRATIVE: CASE EVENT DATE: 2019
